FAERS Safety Report 17763296 (Version 2)
Quarter: 2020Q2

REPORT INFORMATION
  Report Type: Report from Study
  Country: None (occurrence: CA)
  Receive Date: 20200509
  Receipt Date: 20200629
  Transmission Date: 20200714
  Serious: Yes (Death)
  Sender: FDA-Public Use
  Company Number: CA-ABBVIE-20K-028-3397099-00

PATIENT
  Sex: Female
  Weight: 136.2 kg

DRUGS (1)
  1. HUMIRA [Suspect]
     Active Substance: ADALIMUMAB
     Indication: ANKYLOSING SPONDYLITIS
     Route: 058
     Dates: start: 20091221

REACTIONS (3)
  - Cardio-respiratory distress [Unknown]
  - Asthma [Fatal]
  - Cellulitis [Unknown]
